FAERS Safety Report 8050044-6 (Version None)
Quarter: 2012Q1

REPORT INFORMATION
  Report Type: 
  Country: None (occurrence: None)
  Receive Date: 20120117
  Receipt Date: 20120105
  Transmission Date: 20120608
  Serious: Yes (Other)
  Sender: FDA-Public Use
  Company Number: US-JNJFOC-20120102054

PATIENT
  Age: 65 Year
  Sex: Male
  Weight: 86.18 kg

DRUGS (3)
  1. TYLENOL-500 [Suspect]
     Route: 048
  2. ALL OTHER THERAPEUTIC PRODUCTS [Concomitant]
     Route: 065
  3. TYLENOL-500 [Suspect]
     Indication: ARTHRITIS
     Route: 048
     Dates: start: 20120101

REACTIONS (2)
  - EXPIRED DRUG ADMINISTERED [None]
  - BLOOD PRESSURE INCREASED [None]
